FAERS Safety Report 9523626 (Version 3)
Quarter: 2013Q4

REPORT INFORMATION
  Report Type: Spontaneous
  Country: TR (occurrence: TR)
  Receive Date: 20130913
  Receipt Date: 20131011
  Transmission Date: 20140711
  Serious: Yes (Other)
  Sender: FDA-Public Use
  Company Number: TR-PFIZER INC-2013259271

PATIENT
  Age: 43 Year
  Sex: Female

DRUGS (2)
  1. CHAMPIX [Suspect]
     Indication: SMOKING CESSATION THERAPY
     Dosage: 1 TABLET, 1X/DAY
     Dates: start: 201206
  2. CHAMPIX [Suspect]
     Dosage: ONE IN MORNING AND ONE AT NIGHT
     Dates: end: 201208

REACTIONS (19)
  - Haematemesis [Recovered/Resolved]
  - Brain compression [Not Recovered/Not Resolved]
  - Ocular discomfort [Unknown]
  - Muscle spasms [Recovered/Resolved]
  - Burning sensation [Not Recovered/Not Resolved]
  - Feeling abnormal [Not Recovered/Not Resolved]
  - Paraesthesia oral [Not Recovered/Not Resolved]
  - Paraesthesia [Not Recovered/Not Resolved]
  - Hypertension [Unknown]
  - Tachycardia [Unknown]
  - Cold sweat [Unknown]
  - Local swelling [Unknown]
  - Headache [Unknown]
  - Photophobia [Unknown]
  - Asthenia [Unknown]
  - Bruxism [Unknown]
  - Nasal discomfort [Not Recovered/Not Resolved]
  - Photopsia [Unknown]
  - Somatisation disorder [Unknown]
